FAERS Safety Report 5767065-6 (Version None)
Quarter: 2008Q2

REPORT INFORMATION
  Report Type: 
  Country: None (occurrence: None)
  Receive Date: 20080612
  Receipt Date: 20080606
  Transmission Date: 20081010
  Serious: Yes (Death, Other)
  Sender: FDA-Public Use
  Company Number: US-AVENTIS-200813525US

PATIENT
  Sex: Male
  Weight: 75.45 kg

DRUGS (15)
  1. LOVENOX [Suspect]
     Dates: start: 20080512
  2. LOVENOX [Suspect]
     Dates: start: 20080501
  3. LOVENOX [Suspect]
     Dates: end: 20080518
  4. ALPRAZOLAM [Concomitant]
     Dosage: DOSE: UNK
  5. DIGOXIN [Concomitant]
     Dosage: DOSE: UNK
  6. ASPIRIN [Concomitant]
     Dosage: DOSE: ^LOW DOSE^
  7. METOPROLOL [Concomitant]
     Dosage: DOSE: UNK
  8. DUONEB [Concomitant]
     Dosage: DOSE: UNK
  9. PULMICORT RESPULES [Concomitant]
     Dosage: DOSE: UNK
  10. ZANTAC [Concomitant]
     Dosage: DOSE: UNK
  11. LASIX [Concomitant]
     Dosage: DOSE: UNK
  12. PREDNISONE TAB [Concomitant]
     Dosage: DOSE: UNK
  13. ASCORBIC ACID [Concomitant]
     Dosage: DOSE: UNK
  14. MULTI-VITAMINS [Concomitant]
     Dosage: DOSE: UNK
  15. COLACE [Concomitant]
     Dosage: DOSE: UNK

REACTIONS (6)
  - CREATININE RENAL CLEARANCE DECREASED [None]
  - DEATH [None]
  - DEHYDRATION [None]
  - DRUG INEFFECTIVE [None]
  - INJECTION SITE HAEMATOMA [None]
  - THROMBOSIS [None]
